FAERS Safety Report 24744523 (Version 1)
Quarter: 2024Q4

REPORT INFORMATION
  Report Type: Spontaneous
  Country: RO (occurrence: RO)
  Receive Date: 20241217
  Receipt Date: 20241217
  Transmission Date: 20250115
  Serious: Yes (Other)
  Sender: AMGEN
  Company Number: RO-AMGEN-ROUSP2024242759

PATIENT
  Age: 71 Year
  Sex: Male

DRUGS (1)
  1. PANITUMUMAB [Suspect]
     Active Substance: PANITUMUMAB
     Indication: Colorectal cancer
     Dosage: UNK
     Route: 065

REACTIONS (15)
  - Staphylococcal infection [Unknown]
  - Dermatitis acneiform [Recovering/Resolving]
  - Red blood cell sedimentation rate increased [Unknown]
  - C-reactive protein increased [Unknown]
  - Loss of personal independence in daily activities [Unknown]
  - Hyperaesthesia [Unknown]
  - Skin burning sensation [Unknown]
  - Trichomegaly [Unknown]
  - Xerosis [Unknown]
  - Nasal mucosal erosion [Unknown]
  - Oral mucosa erosion [Unknown]
  - Paronychia [Unknown]
  - Stomatitis [Unknown]
  - Pruritus [Unknown]
  - Erythema [Unknown]
